FAERS Safety Report 5472041-7 (Version None)
Quarter: 2007Q3

REPORT INFORMATION
  Report Type: 
  Country: None (occurrence: None)
  Receive Date: 20070928
  Receipt Date: 20070919
  Transmission Date: 20080115
  Serious: Yes (Death, Hospitalization, Other)
  Sender: FDA-Public Use
  Company Number: JP-PFIZER INC-2007078950

PATIENT
  Sex: Female

DRUGS (6)
  1. DOXORUBICIN HYDROCHLORIDE [Suspect]
     Indication: BREAST CANCER RECURRENT
     Route: 042
     Dates: start: 20020426, end: 20020705
  2. NAVELBINE [Suspect]
     Indication: BREAST CANCER RECURRENT
     Dosage: DAILY DOSE:25MG/M2
     Route: 042
     Dates: start: 20070821, end: 20070821
  3. HYSRON-H200 [Suspect]
     Indication: BREAST CANCER RECURRENT
     Dosage: DAILY DOSE:800MG
     Route: 048
     Dates: start: 20041203, end: 20070807
  4. LOXONIN [Suspect]
     Dosage: DAILY DOSE:180MG
     Route: 048
  5. OXYCONTIN [Suspect]
     Dosage: DAILY DOSE:80MG
     Route: 048
  6. TAXOL [Concomitant]
     Route: 042
     Dates: start: 20041203, end: 20070807

REACTIONS (8)
  - ASPARTATE AMINOTRANSFERASE [None]
  - BLOOD CREATININE INCREASED [None]
  - BLOOD LACTATE DEHYDROGENASE INCREASED [None]
  - CARDIAC FAILURE ACUTE [None]
  - LEUKOPENIA [None]
  - NEUTROPENIA [None]
  - PAIN IN EXTREMITY [None]
  - PROTEIN TOTAL DECREASED [None]
